FAERS Safety Report 24121004 (Version 1)
Quarter: 2024Q3

REPORT INFORMATION
  Report Type: Spontaneous
  Country: US (occurrence: US)
  Receive Date: 20240722
  Receipt Date: 20240722
  Transmission Date: 20241017
  Serious: No
  Sender: PFIZER
  Company Number: US-PFIZER INC-PV202400095145

PATIENT
  Age: 71 Year
  Sex: Male

DRUGS (1)
  1. INLYTA [Suspect]
     Active Substance: AXITINIB
     Dosage: 3 TABLETS BY MOUTH EVERY 12 HOURS
     Route: 048

REACTIONS (3)
  - Visual impairment [Unknown]
  - Diarrhoea [Unknown]
  - Muscle spasms [Unknown]
